FAERS Safety Report 13701546 (Version 1)
Quarter: 2017Q2

REPORT INFORMATION
  Report Type: Report from Study
  Country: US (occurrence: US)
  Receive Date: 20170629
  Receipt Date: 20170629
  Transmission Date: 20170830
  Serious: Yes (Other)
  Sender: FDA-Public Use
  Company Number: US-BAYER-2017-122154

PATIENT
  Age: 11 Year
  Sex: Male

DRUGS (6)
  1. ASPIRIN. [Interacting]
     Active Substance: ASPIRIN
     Indication: CORONARY ARTERY ANEURYSM
  2. WARFARIN [Interacting]
     Active Substance: WARFARIN
     Indication: KAWASAKI^S DISEASE
  3. CLOPIDOGREL [Interacting]
     Active Substance: CLOPIDOGREL BISULFATE
     Indication: CORONARY ARTERY ANEURYSM
  4. ASPIRIN. [Suspect]
     Active Substance: ASPIRIN
     Indication: KAWASAKI^S DISEASE
     Dosage: 3-5 MG/KG/D ROUNDED TO THE NEAREST ONE-HALF TABLET
  5. WARFARIN [Interacting]
     Active Substance: WARFARIN
     Indication: CORONARY ARTERY ANEURYSM
  6. CLOPIDOGREL [Interacting]
     Active Substance: CLOPIDOGREL BISULFATE
     Indication: KAWASAKI^S DISEASE

REACTIONS (9)
  - International normalised ratio increased [None]
  - Anaemia [None]
  - Haemoglobin decreased [None]
  - Drug administered to patient of inappropriate age [None]
  - Drug administration error [None]
  - Off label use [None]
  - Labelled drug-drug interaction medication error [None]
  - Product use in unapproved indication [None]
  - Epistaxis [None]
